FAERS Safety Report 9022513 (Version 1)
Quarter: 2013Q1

REPORT INFORMATION
  Report Type: Spontaneous
  Country: DE (occurrence: DE)
  Receive Date: 20130118
  Receipt Date: 20130118
  Transmission Date: 20140127
  Serious: Yes (Other)
  Sender: FDA-Public Use
  Company Number: DE-TEVA-379643GER

PATIENT
  Sex: Female
  Weight: 3.5 kg

DRUGS (6)
  1. MIRTAZAPINE [Suspect]
     Route: 064
  2. CITALOPRAM [Concomitant]
     Route: 064
  3. VALPROAT [Concomitant]
     Route: 064
  4. CHLORPROTHIXENE [Concomitant]
     Route: 064
  5. L-THYROXIN [Concomitant]
     Route: 064
  6. FOLIO [Concomitant]
     Route: 064

REACTIONS (1)
  - Apnoea neonatal [Recovered/Resolved]
